FAERS Safety Report 9277866 (Version 1)
Quarter: 2012Q4

REPORT INFORMATION
  Report Type: Spontaneous
  Country: US (occurrence: None)
  Receive Date: 20121210
  Receipt Date: 20121210
  Transmission Date: 20130627
  Serious: Yes (Other)
  Sender: FDA-Public Use
  Company Number: FK201203693

PATIENT
  Age: 77 Year
  Sex: Male

DRUGS (3)
  1. AMIODARONE HCL (MANUFACTURER UNKNOWN)(AMIODARONE HYDROCHLORIDE)(AMIODARONE HYDROCHLORIDE) [Suspect]
     Indication: ATRIAL FIBRILLATION
     Dosage: 1 IN 24 HR
     Route: 048
  2. DABIGATRAN (DABIGATRAN) (DABIGA TRAN) [Suspect]
     Dosage: STARTED 2 WKS AFTER AMIODARONE THERAPY
     Route: 048
  3. DABIGATRAN (DABIGATRAN) (DABIGA TRAN) [Suspect]
     Dosage: once daily
     Route: 048

REACTIONS (4)
  - Upper gastrointestinal haemorrhage [None]
  - Drug interaction [None]
  - International normalised ratio increased [None]
  - Activated partial thromboplastin time prolonged [None]
